FAERS Safety Report 7877718-1 (Version None)
Quarter: 2011Q4

REPORT INFORMATION
  Report Type: 
  Country: None (occurrence: None)
  Receive Date: 20111031
  Receipt Date: 20111031
  Transmission Date: 20120403
  Serious: No
  Sender: FDA-Public Use
  Company Number: None

PATIENT
  Age: 77 Year
  Sex: Female
  Weight: 63.502 kg

DRUGS (1)
  1. SPIRIVA [Suspect]
     Dosage: 1 CAPSULE
     Route: 050

REACTIONS (1)
  - PRODUCT PACKAGING ISSUE [None]
